FAERS Safety Report 4401377-3 (Version None)
Quarter: 2004Q3

REPORT INFORMATION
  Report Type: 
  Country: None (occurrence: None)
  Receive Date: 20040907
  Receipt Date: 20040401
  Transmission Date: 20050211
  Serious: No
  Sender: FDA-Public Use
  Company Number: US-BRISTOL-MYERS SQUIBB COMPANY-12548525

PATIENT
  Sex: Male
  Weight: 75 kg

DRUGS (7)
  1. COUMADIN [Suspect]
     Indication: CEREBROVASCULAR ACCIDENT
     Dosage: DOSAGE: 5MG DAILY T, W, F, S, S AND 7.5MG DAILY ON M AND TH
     Route: 048
  2. LISINOPRIL [Concomitant]
  3. NEXIUM [Concomitant]
  4. ASPIRIN [Concomitant]
  5. HYDROCHLOROTHIAZIDE [Concomitant]
  6. XANAX [Concomitant]
  7. RESTORIL [Concomitant]

REACTIONS (1)
  - BLOOD CHOLESTEROL INCREASED [None]
